FAERS Safety Report 9822559 (Version 1)
Quarter: 2014Q1

REPORT INFORMATION
  Report Type: Report from Study
  Country: US (occurrence: US)
  Receive Date: 20140116
  Receipt Date: 20140116
  Transmission Date: 20141002
  Serious: Yes (Hospitalization)
  Sender: FDA-Public Use
  Company Number: US-ROCHE-1333960

PATIENT
  Age: 59 Year
  Sex: Female
  Weight: 51.3 kg

DRUGS (19)
  1. AVASTIN [Suspect]
     Indication: COLON CANCER
     Route: 042
     Dates: start: 20130227
  2. AVASTIN [Suspect]
     Route: 042
     Dates: start: 20130313
  3. AVASTIN [Suspect]
     Dosage: ALSO RECIEVED ON 27/MAR/2013
     Route: 042
     Dates: start: 20130313
  4. AVASTIN [Suspect]
     Dosage: ALSO RECIEVED ON02/MAY/2013
     Route: 042
     Dates: start: 20130410
  5. KYTRIL [Suspect]
     Indication: PRODUCT USED FOR UNKNOWN INDICATION
     Route: 065
  6. ALOXI [Concomitant]
     Route: 042
  7. DEXAMETHASONE SODIUM PHOSPHATE [Concomitant]
     Route: 042
  8. ELOXATIN [Concomitant]
     Route: 042
  9. FUSILEV [Concomitant]
     Route: 042
  10. FLUOROURACIL [Concomitant]
     Route: 042
  11. FLUOROURACIL [Concomitant]
     Route: 042
  12. FLUOROURACIL [Concomitant]
     Route: 042
  13. FLUOROURACIL [Concomitant]
     Route: 042
  14. PROMETHAZINE [Concomitant]
     Dosage: 12.5
     Route: 065
  15. NEULASTA [Concomitant]
     Dosage: 6
     Route: 065
  16. FAMOTIDINE [Concomitant]
  17. NORMAL SALINE [Concomitant]
     Route: 065
  18. NORMAL SALINE [Concomitant]
     Route: 065
  19. POTASSIUM CHLORIDE [Concomitant]
     Route: 042

REACTIONS (21)
  - Bladder catheterisation [Unknown]
  - Pain [Unknown]
  - Back pain [Unknown]
  - Abdominal pain [Not Recovered/Not Resolved]
  - Laboratory test abnormal [Unknown]
  - Pain [Not Recovered/Not Resolved]
  - Monocyte count abnormal [Unknown]
  - Basophil count abnormal [Unknown]
  - Eosinophil count abnormal [Unknown]
  - Mean cell volume abnormal [Unknown]
  - Mean cell haemoglobin concentration abnormal [Unknown]
  - Weight increased [Unknown]
  - Body temperature decreased [Unknown]
  - Hypertension [Unknown]
  - Pain [Unknown]
  - Urine abnormality [Unknown]
  - Red blood cell abnormality [Unknown]
  - Heart rate increased [Unknown]
  - White blood cell disorder [Unknown]
  - Neutrophil count abnormal [Unknown]
  - Blood glucose abnormal [Unknown]
